FAERS Safety Report 19397795 (Version 1)
Quarter: 2021Q2

REPORT INFORMATION
  Report Type: Spontaneous
  Country: DE (occurrence: DE)
  Receive Date: 20210610
  Receipt Date: 20210610
  Transmission Date: 20210717
  Serious: Yes (Death, Hospitalization)
  Sender: FDA-Public Use
  Company Number: DE-TEVA-2021-DE-1920065

PATIENT

DRUGS (10)
  1. METHOTREXATE. [Suspect]
     Active Substance: METHOTREXATE
     Indication: CENTRAL NERVOUS SYSTEM LYMPHOMA
     Dosage: HIGH?DOSE SYSTEMIC METHOTREXATE (HDMTX)?BASED CHEMOTHERAPY; INDUCTION THERAPY; 4H INFUSION
     Route: 041
  2. ARAC [Suspect]
     Active Substance: CYTARABINE
     Indication: CENTRAL NERVOUS SYSTEM LYMPHOMA
     Dosage: INTRACEREBROVENTRICULAR (ICV; MODIFIED BONN PROTOCOL) CHEMOTHERAPY
     Route: 050
  3. PREDNISOLONE. [Suspect]
     Active Substance: PREDNISOLONE
     Indication: CENTRAL NERVOUS SYSTEM LYMPHOMA
     Dosage: INTRACEREBROVENTRICULAR (ICV; MODIFIED BONN PROTOCOL) CHEMOTHERAPY
     Route: 050
  4. RITUXIMAB. [Suspect]
     Active Substance: RITUXIMAB
     Indication: CENTRAL NERVOUS SYSTEM LYMPHOMA
     Dosage: HIGH?DOSE SYSTEMIC METHOTREXATE (HDMTX)?BASED CHEMOTHERAPY; INDUCTION THERAPY
     Route: 042
  5. IFOSFAMIDE. [Suspect]
     Active Substance: IFOSFAMIDE
     Indication: CENTRAL NERVOUS SYSTEM LYMPHOMA
     Dosage: HIGH?DOSE SYSTEMIC METHOTREXATE (HDMTX)?BASED CHEMOTHERAPY; INDUCTION THERAPY; 1H INUSION
     Route: 041
  6. ARAC [Suspect]
     Active Substance: CYTARABINE
     Indication: CENTRAL NERVOUS SYSTEM LYMPHOMA
     Dosage: CONSOLIDATION TREATMENT; 3H INFUSION
     Route: 041
  7. SODIUM 2?MERCAPTOETHANE SULFONATE [Concomitant]
     Active Substance: MESNA
     Indication: PROPHYLAXIS
     Route: 065
  8. SULFAMETHOXAZOLE/TRIMETHOPRIM [Concomitant]
     Active Substance: SULFAMETHOXAZOLE\TRIMETHOPRIM
     Indication: PROPHYLAXIS
     Route: 065
  9. ACICLOVIR [Concomitant]
     Active Substance: ACYCLOVIR
     Indication: PROPHYLAXIS
     Route: 065
  10. METHOTREXATE. [Suspect]
     Active Substance: METHOTREXATE
     Dosage: INTRACEREBROVENTRICULAR (ICV; MODIFIED BONN PROTOCOL) CHEMOTHERAPY
     Route: 050

REACTIONS (2)
  - Hepatitis B reactivation [Unknown]
  - Hepatic failure [Fatal]
